FAERS Safety Report 7864818-5 (Version None)
Quarter: 2011Q4

REPORT INFORMATION
  Report Type: 
  Country: None (occurrence: None)
  Receive Date: 20111028
  Receipt Date: 20101012
  Transmission Date: 20120403
  Serious: No
  Sender: FDA-Public Use
  Company Number: US-GLAXOSMITHKLINE-A0873225A

PATIENT
  Age: 74 Year
  Sex: Female

DRUGS (2)
  1. ADVAIR DISKUS 100/50 [Suspect]
     Indication: CHRONIC OBSTRUCTIVE PULMONARY DISEASE
     Dosage: 1BLS TWICE PER DAY
     Route: 065
     Dates: start: 20010101, end: 20100501
  2. SYNTHROID [Concomitant]

REACTIONS (2)
  - OSTEOPOROSIS [None]
  - COUGH [None]
